FAERS Safety Report 17151792 (Version 1)
Quarter: 2019Q4

REPORT INFORMATION
  Report Type: Spontaneous
  Country: US (occurrence: US)
  Receive Date: 20191212
  Receipt Date: 20191212
  Transmission Date: 20200122
  Serious: Yes (Other)
  Sender: FDA-Public Use
  Company Number: None

PATIENT
  Age: 48 Year
  Sex: Male
  Weight: 114.75 kg

DRUGS (11)
  1. ATORVASTATIN [Concomitant]
     Active Substance: ATORVASTATIN
  2. LUNESTA [Concomitant]
     Active Substance: ESZOPICLONE
  3. COENZYME Q10 [Concomitant]
     Active Substance: UBIDECARENONE
  4. XANAX [Concomitant]
     Active Substance: ALPRAZOLAM
  5. POTASSIUM CITRATE. [Concomitant]
     Active Substance: POTASSIUM CITRATE
  6. PLAVIX [Concomitant]
     Active Substance: CLOPIDOGREL BISULFATE
  7. ASPIRIN. [Concomitant]
     Active Substance: ASPIRIN
  8. METOPROLOL SUCCINATE. [Concomitant]
     Active Substance: METOPROLOL SUCCINATE
  9. GABAPENTIN. [Concomitant]
     Active Substance: GABAPENTIN
  10. REPATHA [Suspect]
     Active Substance: EVOLOCUMAB
     Indication: BLOOD CHOLESTEROL INCREASED
     Dosage: ?          QUANTITY:1 INJECTION(S);OTHER FREQUENCY:EVERY 14 DAYS;OTHER ROUTE:AUTO INJECTOR IN THE THIGH?
     Dates: start: 20191206, end: 20191212
  11. TRAMADOL. [Concomitant]
     Active Substance: TRAMADOL

REACTIONS (5)
  - Blood glucose increased [None]
  - Pain [None]
  - Hyperhidrosis [None]
  - Influenza like illness [None]
  - Headache [None]

NARRATIVE: CASE EVENT DATE: 20191212
